FAERS Safety Report 4293197-8 (Version None)
Quarter: 2004Q1

REPORT INFORMATION
  Report Type: 
  Country: None (occurrence: None)
  Receive Date: 20040210
  Receipt Date: 20040128
  Transmission Date: 20041129
  Serious: Yes (Hospitalization, Other)
  Sender: FDA-Public Use
  Company Number: 2004005036

PATIENT
  Age: 42 Year
  Sex: Female

DRUGS (5)
  1. RELPAX [Suspect]
     Indication: MIGRAINE
  2. PHENYLPROPANOLAMINE HCL [Concomitant]
  3. PHENTERMINE [Concomitant]
  4. ALL OTHER THERAPEUTIC PRODUCTS [Concomitant]
  5. SERETIDE MITE (FLUTICASONE PROPIONATE, SALMETEROL XINAFOATE) [Concomitant]

REACTIONS (4)
  - CARDIAC ENZYMES INCREASED [None]
  - CHEST PAIN [None]
  - ELECTROCARDIOGRAM ABNORMAL [None]
  - VASOSPASM [None]
